FAERS Safety Report 14634114 (Version 1)
Quarter: 2018Q1

REPORT INFORMATION
  Report Type: Report from Study
  Country: ZA (occurrence: ZA)
  Receive Date: 20180314
  Receipt Date: 20180314
  Transmission Date: 20180509
  Serious: Yes (Other)
  Sender: FDA-Public Use
  Company Number: ZA-CIPLA LTD.-2018ZA10901

PATIENT

DRUGS (4)
  1. VINCRISTINE [Suspect]
     Active Substance: VINCRISTINE
     Indication: KAPOSI^S SARCOMA
     Dosage: 1.4 MG/M2, (CAPPED AT 2 MG) EVERY 3 WEEKS
     Route: 042
  2. BLEOMYCIN SULPHATE [Suspect]
     Active Substance: BLEOMYCIN SULFATE
     Indication: KAPOSI^S SARCOMA
     Dosage: 10 U/M2, EVERY 3 WEEKS
     Route: 042
  3. LAMIVUDINE/NEVIRAPINE/STAVUDINE [Suspect]
     Active Substance: LAMIVUDINE\NEVIRAPINE\STAVUDINE
     Indication: HIV INFECTION
     Dosage: 150 MG/ 200 MG/40 MG
     Route: 065
  4. DOXORUBICIN HYDROCHLORIDE. [Suspect]
     Active Substance: DOXORUBICIN HYDROCHLORIDE
     Indication: KAPOSI^S SARCOMA
     Dosage: 20 MG/M2, EVERY 3 WEEKS
     Route: 042

REACTIONS (1)
  - Toxicity to various agents [Unknown]
